FAERS Safety Report 4338173-1 (Version None)
Quarter: 2004Q2

REPORT INFORMATION
  Report Type: 
  Country: None (occurrence: None)
  Receive Date: 20040407
  Receipt Date: 20040331
  Transmission Date: 20050107
  Serious: Yes (Death, Life-Threatening, Disabling)
  Sender: FDA-Public Use
  Company Number: 2004AP02024

PATIENT
  Age: 59 Year
  Sex: Female
  Weight: 91.5 kg

DRUGS (3)
  1. IRESSA [Suspect]
     Indication: BREAST CANCER
     Dosage: 250 MG DAILY PO
     Route: 048
     Dates: start: 20031218, end: 20040303
  2. TAXOTERE [Suspect]
     Indication: BREAST CANCER
     Dosage: 100 MG/M2 Q3WK IV
     Route: 042
     Dates: start: 20031218, end: 20040225
  3. KARVEZIDE [Concomitant]

REACTIONS (4)
  - ADVERSE EVENT [None]
  - CEREBROVASCULAR ACCIDENT [None]
  - COMA [None]
  - DRUG TOXICITY [None]
